FAERS Safety Report 24586575 (Version 1)
Quarter: 2024Q4

REPORT INFORMATION
  Report Type: Spontaneous
  Country: IN (occurrence: IN)
  Receive Date: 20241107
  Receipt Date: 20241107
  Transmission Date: 20250115
  Serious: Yes (Death)
  Sender: AMGEN
  Company Number: IN-AMGEN-INDSP2024215681

PATIENT

DRUGS (1)
  1. PROLIA [Suspect]
     Active Substance: DENOSUMAB
     Indication: Neuropathic arthropathy
     Dosage: 60 MILLIGRAM (SINGLE-DOSE)
     Route: 058

REACTIONS (8)
  - Death [Fatal]
  - Drug effective for unapproved indication [Unknown]
  - Ulcer [Recovered/Resolved]
  - Injection site erythema [Unknown]
  - Myalgia [Unknown]
  - Arthralgia [Unknown]
  - Hypocalcaemia [Unknown]
  - Off label use [Unknown]
